FAERS Safety Report 20316663 (Version 2)
Quarter: 2022Q1

REPORT INFORMATION
  Report Type: Spontaneous
  Country: US (occurrence: US)
  Receive Date: 20220110
  Receipt Date: 20220111
  Transmission Date: 20220423
  Serious: No
  Sender: FDA-Public Use
  Company Number: US-BIOGEN-2022BI01084061

PATIENT
  Age: 67 Year
  Sex: Female

DRUGS (2)
  1. PLEGRIDY [Suspect]
     Active Substance: PEGINTERFERON BETA-1A
     Indication: Multiple sclerosis
     Route: 065
     Dates: start: 20150905
  2. PLEGRIDY [Suspect]
     Active Substance: PEGINTERFERON BETA-1A
     Route: 065

REACTIONS (2)
  - Drug delivery system malfunction [Unknown]
  - Injection site pain [Unknown]

NARRATIVE: CASE EVENT DATE: 20210123
